FAERS Safety Report 11166240 (Version 1)
Quarter: 2015Q2

REPORT INFORMATION
  Report Type: Spontaneous
  Country: DK (occurrence: DK)
  Receive Date: 20150605
  Receipt Date: 20150605
  Transmission Date: 20150821
  Serious: Yes (Hospitalization)
  Sender: FDA-Public Use
  Company Number: DK-009507513-1506DNK002174

PATIENT
  Age: 25 Year
  Sex: Female

DRUGS (1)
  1. MERCILON [Suspect]
     Active Substance: DESOGESTREL\ETHINYL ESTRADIOL
     Indication: CONTRACEPTION
     Dosage: STRENGTH: 150 + 20 MICROGRAMS
     Route: 048
     Dates: start: 20140808, end: 20150413

REACTIONS (2)
  - Pregnancy on oral contraceptive [Recovered/Resolved]
  - Abortion induced [Recovered/Resolved]

NARRATIVE: CASE EVENT DATE: 20150413
